FAERS Safety Report 10161665 (Version 1)
Quarter: 2014Q2

REPORT INFORMATION
  Report Type: Spontaneous
  Country: US (occurrence: None)
  Receive Date: 20140508
  Receipt Date: 20140508
  Transmission Date: 20141212
  Serious: Yes (Other)
  Sender: FDA-Public Use
  Company Number: None

PATIENT
  Age: 31 Year
  Sex: Female
  Weight: 58.06 kg

DRUGS (2)
  1. ZYRTEC [Suspect]
     Indication: NASAL DISORDER
     Dosage: 1 PILL ONCE DAILY TAKEN BY MOUTH
     Route: 048
     Dates: start: 20121030, end: 20140504
  2. ZYRTEC [Suspect]
     Indication: HYPERSENSITIVITY
     Dosage: 1 PILL ONCE DAILY TAKEN BY MOUTH
     Route: 048
     Dates: start: 20121030, end: 20140504

REACTIONS (6)
  - Skin disorder [None]
  - Scratch [None]
  - Insomnia [None]
  - Activities of daily living impaired [None]
  - Erythema [None]
  - Pruritus [None]
